FAERS Safety Report 6126686-1 (Version None)
Quarter: 2009Q1

REPORT INFORMATION
  Report Type: 
  Country: None (occurrence: None)
  Receive Date: 20090320
  Receipt Date: 20090310
  Transmission Date: 20090719
  Serious: Yes (Hospitalization)
  Sender: FDA-Public Use
  Company Number: SE-PFIZER INC-2009177982

PATIENT

DRUGS (1)
  1. DALACIN [Suspect]
     Indication: INFECTION
     Dosage: 300 MG, 3X/DAY
     Dates: start: 20090226

REACTIONS (3)
  - FAECES DISCOLOURED [None]
  - GASTRIC ULCER [None]
  - SYNCOPE [None]
